FAERS Safety Report 9387291 (Version 1)
Quarter: 2013Q3

REPORT INFORMATION
  Report Type: Spontaneous
  Country: IT (occurrence: None)
  Receive Date: 20130702
  Receipt Date: 20130702
  Transmission Date: 20140515
  Serious: Yes (Other)
  Sender: FDA-Public Use
  Company Number: FK201302194

PATIENT
  Age: 63 Year
  Sex: Female

DRUGS (1)
  1. GEMCITABINE [Suspect]
     Indication: PLEURAL MESOTHELIOMA
     Dosage: CYCLIC, (NOT OTHERWISE SPECIFIED)
     Route: 042
     Dates: start: 20130515, end: 20130605

REACTIONS (2)
  - Dysgeusia [None]
  - Neutropenia [None]
